FAERS Safety Report 25463978 (Version 1)
Quarter: 2025Q2

REPORT INFORMATION
  Report Type: Spontaneous
  Country: US (occurrence: US)
  Receive Date: 20250621
  Receipt Date: 20250621
  Transmission Date: 20250716
  Serious: Yes (Other)
  Sender: GLAXOSMITHKLINE
  Company Number: US-GLAXOSMITHKLINE INC-US2025072784

PATIENT
  Age: 73 Year
  Sex: Male

DRUGS (6)
  1. NUCALA [Suspect]
     Active Substance: MEPOLIZUMAB
     Indication: Product used for unknown indication
  2. DOXYCYCLINE HYCLATE [Concomitant]
     Active Substance: DOXYCYCLINE HYCLATE
     Indication: Staphylococcal infection
     Dosage: 100 MG, BID
  3. BUDESONIDE [Concomitant]
     Active Substance: BUDESONIDE
     Indication: Staphylococcal infection
     Dosage: 5 MG, BID
  4. PREDNISONE [Concomitant]
     Active Substance: PREDNISONE
     Indication: Staphylococcal infection
  5. TRELEGY ELLIPTA [Concomitant]
     Active Substance: FLUTICASONE FUROATE\UMECLIDINIUM BROMIDE\VILANTEROL TRIFENATATE
     Indication: Staphylococcal infection
     Dosage: 200 MG, QD
  6. IPRATROPIUM BROMIDE AND ALBUTEROL SULFATE [Concomitant]
     Active Substance: ALBUTEROL SULFATE\IPRATROPIUM BROMIDE
     Indication: Staphylococcal infection

REACTIONS (5)
  - Pneumonia [Not Recovered/Not Resolved]
  - Staphyloma [Unknown]
  - Sinusitis [Not Recovered/Not Resolved]
  - Nasopharyngitis [Unknown]
  - Staphylococcal infection [Not Recovered/Not Resolved]

NARRATIVE: CASE EVENT DATE: 20250501
